FAERS Safety Report 5016921-5 (Version None)
Quarter: 2006Q2

REPORT INFORMATION
  Report Type: 
  Country: None (occurrence: None)
  Receive Date: 20060526
  Receipt Date: 20060519
  Transmission Date: 20061013
  Serious: Yes (Hospitalization)
  Sender: FDA-Public Use
  Company Number: T05-USA-03177-01

PATIENT
  Age: 87 Year
  Sex: Female

DRUGS (18)
  1. MEMANTINE HCL [Suspect]
     Indication: DEMENTIA ALZHEIMER'S TYPE
  2. PLACEBO (UNBLINDED) (PLACEBO) [Suspect]
     Indication: DEMENTIA ALZHEIMER'S TYPE
     Dosage: 4 TABLET QD PO
     Route: 048
     Dates: start: 20050823
  3. NORVASC [Concomitant]
  4. OSTEOBIFAX [Concomitant]
  5. PRINIVIL [Concomitant]
  6. MULTIVITAMIN [Concomitant]
  7. ASPIRIN [Concomitant]
  8. LIDODERM PATCH [Concomitant]
  9. KADIAN [Concomitant]
  10. ARICEPT [Concomitant]
  11. CANTULOSE [Concomitant]
  12. DOXEPIN [Concomitant]
  13. LORATADINE [Concomitant]
  14. MILK OF MAGNESIA TAB [Concomitant]
  15. ACETAMINOPHEN [Concomitant]
  16. SYNTHROID [Concomitant]
  17. PLAVIX [Concomitant]
  18. CELEBREX [Concomitant]

REACTIONS (14)
  - ANEURYSM [None]
  - AORTIC ARTERIOSCLEROSIS [None]
  - BACK PAIN [None]
  - BLOOD PH DECREASED [None]
  - BRONCHIECTASIS [None]
  - CEREBRAL ATROPHY [None]
  - CONSTIPATION [None]
  - DEMENTIA [None]
  - HYPOTENSION [None]
  - LOSS OF CONSCIOUSNESS [None]
  - MYOCARDIAL INFARCTION [None]
  - OSTEOPOROSIS [None]
  - RENAL CYST [None]
  - URINARY TRACT INFECTION [None]
